FAERS Safety Report 24423648 (Version 4)
Quarter: 2024Q4

REPORT INFORMATION
  Report Type: Report from Study
  Country: TR (occurrence: TR)
  Receive Date: 20241010
  Receipt Date: 20241226
  Transmission Date: 20250114
  Serious: Yes (Hospitalization)
  Sender: PFIZER
  Company Number: TR-PFIZER INC-PV202400086025

PATIENT
  Age: 62 Year
  Sex: Male

DRUGS (3)
  1. ELRANATAMAB [Suspect]
     Active Substance: ELRANATAMAB
     Indication: Plasma cell myeloma
     Dosage: 76 MG, WEEKLY
     Route: 058
     Dates: start: 202301, end: 20240223
  2. VALACYCLOVIR [Concomitant]
     Active Substance: VALACYCLOVIR HYDROCHLORIDE
     Indication: Prophylaxis
     Dosage: 500 MG, DAILY
     Route: 048
     Dates: start: 202301
  3. SULFAMETHOXAZOLE\TRIMETHOPRIM [Concomitant]
     Active Substance: SULFAMETHOXAZOLE\TRIMETHOPRIM
     Indication: Prophylaxis
     Dosage: 160/800 MG, 2X/WEEK
     Route: 048
     Dates: start: 202301

REACTIONS (1)
  - Pneumonia pseudomonal [Recovered/Resolved with Sequelae]

NARRATIVE: CASE EVENT DATE: 20231112
